FAERS Safety Report 8781126 (Version 3)
Quarter: 2012Q4

REPORT INFORMATION
  Report Type: 
  Country: DE (occurrence: DE)
  Receive Date: 20120913
  Receipt Date: 20121126
  Transmission Date: 20130627
  Serious: Yes (Other)
  Sender: FDA-Public Use
  Company Number: PHHY2012DE079007

PATIENT
  Age: 24 Year
  Sex: Female
  Weight: 55 kg

DRUGS (3)
  1. TEGRETAL [Suspect]
     Route: 048
  2. KEPPRA [Interacting]
     Dosage: UNK
     Route: 048
  3. VIMPAT [Concomitant]

REACTIONS (3)
  - Epilepsy [Not Recovered/Not Resolved]
  - Drug interaction [Unknown]
  - Food interaction [Not Recovered/Not Resolved]
